FAERS Safety Report 5378779-4 (Version None)
Quarter: 2007Q3

REPORT INFORMATION
  Report Type: 
  Country: None (occurrence: None)
  Receive Date: 20070705
  Receipt Date: 20070622
  Transmission Date: 20080115
  Serious: Yes (Life-Threatening, Hospitalization)
  Sender: FDA-Public Use
  Company Number: FR-SANOFI-SYNTHELABO-A02200701898

PATIENT
  Age: 57 Year
  Sex: Female

DRUGS (7)
  1. PREVISCAN [Concomitant]
     Indication: MITRAL VALVE DISEASE
     Route: 048
  2. EFFEXOR [Concomitant]
     Indication: DEPRESSION
     Route: 048
     Dates: end: 20070421
  3. CORDARONE [Concomitant]
     Indication: DRUG USE FOR UNKNOWN INDICATION
     Route: 048
  4. MEPRONIZINE [Concomitant]
     Indication: DEPRESSION
     Route: 048
     Dates: start: 20070421, end: 20070421
  5. MEPRONIZINE [Concomitant]
     Indication: INTENTIONAL OVERDOSE
     Route: 048
     Dates: start: 20070421, end: 20070421
  6. TRANXENE [Suspect]
     Indication: INTENTIONAL OVERDOSE
     Route: 048
     Dates: start: 20070421, end: 20070421
  7. ZOLPIDEM TARTRATE [Suspect]
     Indication: INTENTIONAL OVERDOSE
     Route: 048
     Dates: start: 20070421, end: 20070421

REACTIONS (3)
  - COAGULATION TIME PROLONGED [None]
  - INTENTIONAL OVERDOSE [None]
  - LOSS OF CONSCIOUSNESS [None]
